FAERS Safety Report 19941990 (Version 2)
Quarter: 2021Q4

REPORT INFORMATION
  Report Type: Report from Study
  Country: US (occurrence: US)
  Receive Date: 20211011
  Receipt Date: 20211015
  Transmission Date: 20220303
  Serious: Yes (Hospitalization, Other)
  Sender: FDA-Public Use
  Company Number: US-BAYER-2021A221089

PATIENT
  Age: 62 Year
  Sex: Female

DRUGS (1)
  1. STIVARGA [Suspect]
     Active Substance: REGORAFENIB
     Indication: Colorectal cancer
     Dosage: DAILY DOSE 160 MG
     Route: 048
     Dates: start: 20210924, end: 20211002

REACTIONS (7)
  - Drug reaction with eosinophilia and systemic symptoms [Not Recovered/Not Resolved]
  - Abdominal pain [Not Recovered/Not Resolved]
  - Rash [Not Recovered/Not Resolved]
  - Exercise tolerance decreased [Unknown]
  - Pain [Unknown]
  - Rash [Unknown]
  - Depressed mood [Unknown]

NARRATIVE: CASE EVENT DATE: 20211001
